FAERS Safety Report 4489170-7 (Version None)
Quarter: 2004Q4

REPORT INFORMATION
  Report Type: 
  Country: None (occurrence: None)
  Receive Date: 20041029
  Receipt Date: 20040914
  Transmission Date: 20050328
  Serious: Yes (Life-Threatening, Hospitalization, Other)
  Sender: FDA-Public Use
  Company Number: US-BRISTOL-MYERS SQUIBB COMPANY-12701876

PATIENT
  Age: 43 Year
  Sex: Female
  Weight: 76 kg

DRUGS (11)
  1. STAVUDINE XR [Suspect]
     Indication: HIV INFECTION
     Dosage: THERAPY INTERRUPTED ON 27-AUG-2004
     Route: 048
     Dates: start: 20031208
  2. EMTRICITABINE [Suspect]
     Indication: HIV INFECTION
     Dosage: THERAPY INTERRUPTED ON 27-AUG-2004
     Route: 048
     Dates: start: 20031208
  3. LOPINAVIR + RITONAVIR [Suspect]
     Indication: HIV INFECTION
     Dosage: THERAPY INTERRUPTED ON 27-AUG-2004
     Route: 048
     Dates: start: 20031208
  4. BACTRIM DS [Concomitant]
  5. LISINOPRIL [Concomitant]
  6. ASPIRIN [Concomitant]
  7. GLUCOPHAGE [Concomitant]
  8. TRICOR [Concomitant]
  9. NOVOLIN [Concomitant]
  10. NOVOLOG [Concomitant]
  11. NOVOLIN 70/30 [Concomitant]

REACTIONS (8)
  - ASPARTATE AMINOTRANSFERASE INCREASED [None]
  - BILIRUBIN CONJUGATED INCREASED [None]
  - BLOOD ALKALINE PHOSPHATASE INCREASED [None]
  - GAMMA-GLUTAMYLTRANSFERASE INCREASED [None]
  - GENITAL ULCERATION [None]
  - HYPERLACTACIDAEMIA [None]
  - LIPASE INCREASED [None]
  - VOMITING [None]
